FAERS Safety Report 22651596 (Version 1)
Quarter: 2023Q2

REPORT INFORMATION
  Report Type: Report from Study
  Country: IT (occurrence: IT)
  Receive Date: 20230628
  Receipt Date: 20230628
  Transmission Date: 20230722
  Serious: Yes (Other)
  Sender: FDA-Public Use
  Company Number: IT-TEVA-2023-IT-2901247

PATIENT
  Age: 55 Month

DRUGS (10)
  1. VINCRISTINE [Suspect]
     Active Substance: VINCRISTINE
     Indication: Neuroblastoma
     Dosage: 1.5 MG/M2 DAILY; UP TO DAY 5, ONCE A DAY
     Route: 065
  2. VINCRISTINE [Suspect]
     Active Substance: VINCRISTINE
     Dosage: 1.5 MG/M2 DAILY; ON DAY 20 AND 21, ONCE A DAY
     Route: 065
  3. VINCRISTINE [Suspect]
     Active Substance: VINCRISTINE
     Dosage: 1.5 MG/M2 DAILY; ON DAY 29 AND 30, ONCE A DAY
     Route: 065
  4. DOXORUBICIN [Suspect]
     Active Substance: DOXORUBICIN
     Indication: Neuroblastoma
     Dosage: 30 MG/M2 DAILY; ON DAY 29 AN 30, ONCE A DAY
     Route: 065
  5. CISPLATIN [Suspect]
     Active Substance: CISPLATIN
     Indication: Neuroblastoma
     Dosage: 20 MG/M2 DAILY; UPTO DAY 5, ONCE A DAY
     Route: 065
  6. CISPLATIN [Suspect]
     Active Substance: CISPLATIN
     Dosage: 40 MG/M2 DAILY; ON DAY 20 AND 21, ONCE A DAY
     Route: 065
  7. CYCLOPHOSPHAMIDE [Suspect]
     Active Substance: CYCLOPHOSPHAMIDE
     Indication: Neuroblastoma
     Dosage: 2 G/M2- UP TO DAY 5
     Route: 065
  8. CYCLOPHOSPHAMIDE [Suspect]
     Active Substance: CYCLOPHOSPHAMIDE
     Dosage: 1.5 G/M2/DAY ON DAY 29 AND 30
     Route: 065
  9. ETOPOSIDE [Suspect]
     Active Substance: ETOPOSIDE
     Indication: Neuroblastoma
     Dosage: 100 MG/M2 DAILY; UP TO DAY 5, ONCE A DAY
     Route: 065
  10. 131-I-metaiodobenzylguanidine [Concomitant]
     Indication: Neuroblastoma
     Dosage: 18.3 MCI/KG
     Route: 065

REACTIONS (1)
  - Neutropenia [Unknown]
